APPROVED DRUG PRODUCT: LOPINAVIR AND RITONAVIR
Active Ingredient: LOPINAVIR; RITONAVIR
Strength: 80MG/ML;20MG/ML
Dosage Form/Route: SOLUTION;ORAL
Application: A207407 | Product #001
Applicant: LANNETT CO INC
Approved: Dec 27, 2016 | RLD: No | RS: No | Type: DISCN